FAERS Safety Report 26178442 (Version 1)
Quarter: 2025Q4

REPORT INFORMATION
  Report Type: Report from Study
  Country: US (occurrence: US)
  Receive Date: 20251219
  Receipt Date: 20251219
  Transmission Date: 20260117
  Serious: No
  Sender: ACADIA PHARMACEUTICALS
  Company Number: US-ACADIA PHARMACEUTICALS INC.-ACA-2025-PIM-012822

PATIENT
  Sex: Male

DRUGS (12)
  1. NUPLAZID [Suspect]
     Active Substance: PIMAVANSERIN TARTRATE
     Indication: Parkinson^s disease psychosis
     Dosage: 34 MILLIGRAM, QD
     Route: 048
     Dates: end: 20251208
  2. DIAZEPAM [Concomitant]
     Active Substance: DIAZEPAM
  3. DORZOLAMIDE [Concomitant]
     Active Substance: DORZOLAMIDE
  4. TIMOLOL [Concomitant]
     Active Substance: TIMOLOL
  5. ESCITALOPRAM [Concomitant]
     Active Substance: ESCITALOPRAM OXALATE
  6. IBUPROFEN [Concomitant]
     Active Substance: IBUPROFEN
  7. LATANOPROST [Concomitant]
     Active Substance: LATANOPROST
  8. LORAZEPAM [Concomitant]
     Active Substance: LORAZEPAM
  9. VITAMINS [Concomitant]
     Active Substance: VITAMINS
  10. PREDNISOLONE [Concomitant]
     Active Substance: PREDNISOLONE
  11. SODIUM CHLORIDE [Concomitant]
     Active Substance: SODIUM CHLORIDE
  12. TAMSULOSIN [Concomitant]
     Active Substance: TAMSULOSIN

REACTIONS (1)
  - Product use issue [Unknown]
